FAERS Safety Report 22209527 (Version 1)
Quarter: 2023Q2

REPORT INFORMATION
  Report Type: Spontaneous
  Country: AR (occurrence: None)
  Receive Date: 20230414
  Receipt Date: 20230414
  Transmission Date: 20230722
  Serious: Yes (Life-Threatening)
  Sender: FDA-Public Use
  Company Number: 2023A085687

PATIENT
  Age: 82 Year
  Sex: Female

DRUGS (2)
  1. FULVESTRANT [Suspect]
     Active Substance: FULVESTRANT
     Route: 030
  2. PALBOCICLIB [Suspect]
     Active Substance: PALBOCICLIB
     Indication: Breast cancer metastatic
     Dosage: SCHEME 3X1
     Route: 048
     Dates: start: 20200315

REACTIONS (5)
  - Hypersensitivity [Recovered/Resolved]
  - Immune system disorder [Recovered/Resolved]
  - Urinary tract infection [Unknown]
  - Depressed mood [Unknown]
  - Dyspnoea [Unknown]
